FAERS Safety Report 6093136-3 (Version None)
Quarter: 2009Q1

REPORT INFORMATION
  Report Type: 
  Country: None (occurrence: None)
  Receive Date: 20090226
  Receipt Date: 20090217
  Transmission Date: 20090719
  Serious: Yes (Other)
  Sender: FDA-Public Use
  Company Number: BR-PFIZER INC-2009167774

PATIENT

DRUGS (1)
  1. GEODON [Suspect]
     Indication: BIPOLAR DISORDER
     Dosage: UNK
     Route: 048
     Dates: start: 20060101

REACTIONS (4)
  - BLOOD CHOLESTEROL INCREASED [None]
  - DYSPHAGIA [None]
  - GASTRITIS [None]
  - REFLUX GASTRITIS [None]
